FAERS Safety Report 4709119-9 (Version None)
Quarter: 2005Q3

REPORT INFORMATION
  Report Type: 
  Country: None (occurrence: None)
  Receive Date: 20050708
  Receipt Date: 20050628
  Transmission Date: 20060218
  Serious: Yes (Hospitalization)
  Sender: FDA-Public Use
  Company Number: FR-ABBOTT-05P-056-0304541-00

PATIENT
  Age: 36 Year
  Sex: Male

DRUGS (8)
  1. NORVIR [Suspect]
     Indication: HIV INFECTION
     Route: 048
     Dates: start: 20040906, end: 20041026
  2. NORVIR [Suspect]
     Dates: start: 20050223
  3. LAMIVUDINE [Suspect]
     Indication: HIV INFECTION
     Route: 048
     Dates: start: 20040906, end: 20041026
  4. LAMIVUDINE [Suspect]
     Dates: start: 20050223
  5. VIREAD [Suspect]
     Indication: HIV INFECTION
     Route: 048
     Dates: start: 20040906, end: 20041026
  6. VIREAD [Suspect]
     Dates: start: 20050223
  7. TELZIR [Suspect]
     Indication: HIV INFECTION
     Route: 048
     Dates: start: 20040906, end: 20041026
  8. TELZIR [Suspect]
     Dates: start: 20050223

REACTIONS (1)
  - HEPATITIS VIRAL [None]
